FAERS Safety Report 4806659-9 (Version None)
Quarter: 2005Q4

REPORT INFORMATION
  Report Type: 
  Country: None (occurrence: None)
  Receive Date: 20051019
  Receipt Date: 20051004
  Transmission Date: 20060501
  Serious: Yes (Hospitalization)
  Sender: FDA-Public Use
  Company Number: USA0509109416

PATIENT
  Age: 4 Year
  Sex: Male

DRUGS (1)
  1. CIALIS [Suspect]
     Dosage: 20 MG
     Dates: start: 20050901, end: 20050901

REACTIONS (3)
  - ACCIDENTAL EXPOSURE [None]
  - PRIAPISM [None]
  - SPONTANEOUS PENILE ERECTION [None]
